FAERS Safety Report 11862099 (Version 1)
Quarter: 2015Q4

REPORT INFORMATION
  Report Type: Spontaneous
  Country: US (occurrence: US)
  Receive Date: 20151222
  Receipt Date: 20151222
  Transmission Date: 20160305
  Serious: Yes (Death, Other)
  Sender: FDA-Public Use
  Company Number: US-TAKEDA-TPA2013A00753

PATIENT

DRUGS (3)
  1. LISPRO INSULIN [Concomitant]
     Active Substance: INSULIN LISPRO
     Dates: start: 2010
  2. HUMULIN NOS [Concomitant]
     Active Substance: INSULIN HUMAN
     Dates: start: 2010
  3. ACTOS [Suspect]
     Active Substance: PIOGLITAZONE HYDROCHLORIDE
     Indication: TYPE 2 DIABETES MELLITUS
     Dosage: UNK
     Route: 048
     Dates: start: 2005, end: 2010

REACTIONS (1)
  - Bladder cancer [Fatal]
